FAERS Safety Report 26155870 (Version 1)
Quarter: 2025Q4

REPORT INFORMATION
  Report Type: Spontaneous
  Country: EU (occurrence: EU)
  Receive Date: 20251215
  Receipt Date: 20251215
  Transmission Date: 20260118
  Serious: Yes (Other)
  Sender: MERCK KGAA
  Company Number: None

PATIENT
  Age: 41 Year
  Sex: Female

DRUGS (1)
  1. LEVOTHYROXINE SODIUM [Suspect]
     Active Substance: LEVOTHYROXINE SODIUM
     Indication: Hypothyroidism
     Dates: start: 20251017, end: 20251117

REACTIONS (5)
  - Nervousness [Unknown]
  - Dyspnoea [Unknown]
  - Hyperhidrosis [Unknown]
  - Insomnia [Unknown]
  - Product dispensing error [Recovered/Resolved]

NARRATIVE: CASE EVENT DATE: 20251017
